FAERS Safety Report 21914157 (Version 1)
Quarter: 2023Q1

REPORT INFORMATION
  Report Type: Spontaneous
  Country: US (occurrence: US)
  Receive Date: 20230126
  Receipt Date: 20230126
  Transmission Date: 20230418
  Serious: No
  Sender: FDA-Public Use
  Company Number: US-ALLERGAN-2229457US

PATIENT
  Sex: Female

DRUGS (2)
  1. BOTOX COSMETIC [Suspect]
     Active Substance: ONABOTULINUMTOXINA
     Indication: Mephisto sign
     Dosage: UNK UNK, SINGLE
     Route: 030
     Dates: start: 202208, end: 202208
  2. BOTOX COSMETIC [Suspect]
     Active Substance: ONABOTULINUMTOXINA
     Dosage: 1 UNITS, SINGLE
     Route: 030
     Dates: start: 202208, end: 202208

REACTIONS (4)
  - Facial asymmetry [Unknown]
  - Mephisto sign [Unknown]
  - Depressed mood [Unknown]
  - Product preparation error [Unknown]

NARRATIVE: CASE EVENT DATE: 20220801
